FAERS Safety Report 14995127 (Version 3)
Quarter: 2018Q2

REPORT INFORMATION
  Report Type: Spontaneous
  Country: JP (occurrence: JP)
  Receive Date: 20180611
  Receipt Date: 20180620
  Transmission Date: 20180711
  Serious: Yes (Other)
  Sender: FDA-Public Use
  Company Number: JP-009507513-1805JPN001338J

PATIENT
  Age: 9 Year
  Sex: Female
  Weight: 23 kg

DRUGS (6)
  1. VENETLIN [Concomitant]
     Active Substance: ALBUTEROL SULFATE
     Indication: ASTHMA
     Dosage: 2 MG, BID
     Route: 048
     Dates: start: 20180511
  2. NASONEX [Suspect]
     Active Substance: MOMETASONE FUROATE
     Indication: RHINITIS ALLERGIC
     Dosage: 100 MICROGRAM, QD
     Route: 045
     Dates: start: 20180511, end: 20180511
  3. SINGULAIR [Concomitant]
     Active Substance: MONTELUKAST SODIUM
     Indication: ASTHMA
     Dosage: 5 MG, QD
     Route: 048
     Dates: start: 20180511
  4. ALLELOCK [Concomitant]
     Active Substance: OLOPATADINE HYDROCHLORIDE
     Indication: RHINITIS ALLERGIC
     Dosage: 5 MG, BID
     Route: 048
     Dates: start: 20180511
  5. MEDICON [Concomitant]
     Active Substance: DEXTROMETHORPHAN HYDROBROMIDE
     Indication: ASTHMA
     Dosage: 15 MG, BID
     Route: 048
     Dates: start: 20180511
  6. MUCODYNE [Concomitant]
     Active Substance: CARBOCYSTEINE
     Indication: ASTHMA
     Dosage: 250 MG, BID
     Route: 048
     Dates: start: 20180511

REACTIONS (2)
  - Anaphylactoid reaction [Recovered/Resolved]
  - Nasal discomfort [Unknown]

NARRATIVE: CASE EVENT DATE: 20180511
